FAERS Safety Report 7962636-0 (Version None)
Quarter: 2011Q4

REPORT INFORMATION
  Report Type: 
  Country: None (occurrence: None)
  Receive Date: 20111207
  Receipt Date: 20111129
  Transmission Date: 20120403
  Serious: Yes (Hospitalization, Other)
  Sender: FDA-Public Use
  Company Number: US-ABBOTT-11P-163-0879925-00

PATIENT
  Weight: 82.628 kg

DRUGS (1)
  1. HUMIRA [Suspect]
     Indication: PSORIASIS
     Dates: start: 20070101

REACTIONS (3)
  - NEPHROLITHIASIS [None]
  - BACK PAIN [None]
  - PSORIASIS [None]
